FAERS Safety Report 21644894 (Version 1)
Quarter: 2022Q4

REPORT INFORMATION
  Report Type: Spontaneous
  Country: US (occurrence: US)
  Receive Date: 20221125
  Receipt Date: 20221125
  Transmission Date: 20230113
  Serious: No
  Sender: FDA-Public Use
  Company Number: US-PURDUE-USA-2021-0291017

PATIENT
  Age: 66 Year
  Sex: Male
  Weight: 163 kg

DRUGS (4)
  1. HYSINGLA ER [Suspect]
     Active Substance: HYDROCODONE BITARTRATE
     Indication: Back pain
     Dosage: 20 MG, UNK
     Route: 048
  2. HYDROCODONE BITARTRATE [Suspect]
     Active Substance: HYDROCODONE BITARTRATE
     Indication: Product used for unknown indication
     Dosage: UNKNOWN
     Route: 065
  3. DICLOFENAC SODIUM [Concomitant]
     Active Substance: DICLOFENAC SODIUM
     Indication: Analgesic intervention supportive therapy
     Dosage: 75 MG, BID 1 TAB
     Route: 048
     Dates: start: 2018
  4. GABAPENTIN [Concomitant]
     Active Substance: GABAPENTIN
     Indication: Pain
     Dosage: 600 MG, DAILY 1/2 TAB
     Route: 048
     Dates: start: 2017

REACTIONS (3)
  - Gastrointestinal pain [Unknown]
  - Gastritis [Unknown]
  - Pain [Unknown]

NARRATIVE: CASE EVENT DATE: 20210601
